FAERS Safety Report 10150050 (Version 1)
Quarter: 2014Q2

REPORT INFORMATION
  Report Type: Spontaneous
  Country: US (occurrence: US)
  Receive Date: 20140502
  Receipt Date: 20140502
  Transmission Date: 20141212
  Serious: Yes (Hospitalization, Other)
  Sender: FDA-Public Use
  Company Number: US-PFIZER INC-2014118225

PATIENT
  Sex: Male

DRUGS (5)
  1. XANAX [Suspect]
     Dosage: 5 MG, 3X/DAY
     Dates: start: 2009
  2. XANAX [Suspect]
     Dosage: 10 MG, 3X/DAY
  3. OLANZAPINE [Suspect]
     Dosage: UNK
  4. CITALOPRAM [Suspect]
     Dosage: UNK
  5. ALLOPURINOL [Suspect]
     Indication: GOUT
     Dosage: UNK

REACTIONS (7)
  - Drug withdrawal syndrome [Unknown]
  - Myocardial infarction [Unknown]
  - Convulsion [Unknown]
  - Fall [Unknown]
  - Drug ineffective [Unknown]
  - Sleep disorder [Not Recovered/Not Resolved]
  - Irritability [Not Recovered/Not Resolved]
